FAERS Safety Report 5931286-X (Version None)
Quarter: 2008Q4

REPORT INFORMATION
  Report Type: 
  Country: None (occurrence: None)
  Receive Date: 20081024
  Receipt Date: 20081024
  Transmission Date: 20090506
  Serious: Yes (Hospitalization)
  Sender: FDA-Public Use
  Company Number: None

PATIENT
  Age: 24 Year
  Sex: Male
  Weight: 77.1 kg

DRUGS (3)
  1. BUPROPION HCL [Suspect]
     Indication: SMOKING CESSATION THERAPY
     Dosage: 150 MG BID PO
     Route: 048
     Dates: start: 20080922, end: 20081021
  2. ACETAMINOPHEN AND TRAMADOL HCL [Suspect]
     Indication: PAIN
     Dosage: 325/37.5 MG PRN PO
     Route: 048
     Dates: start: 20080430, end: 20081021
  3. . [Concomitant]

REACTIONS (5)
  - CONFUSIONAL STATE [None]
  - CONVULSION [None]
  - CONVULSIVE THRESHOLD LOWERED [None]
  - PAIN [None]
  - POSTICTAL STATE [None]
